FAERS Safety Report 25869142 (Version 1)
Quarter: 2025Q4

REPORT INFORMATION
  Report Type: Spontaneous
  Country: CA (occurrence: CA)
  Receive Date: 20251001
  Receipt Date: 20251001
  Transmission Date: 20260118
  Serious: Yes (Death)
  Sender: BAYER HEALTHCARE PHARMACEUTICALS INC.
  Company Number: CA-BAYER-2025A129058

PATIENT
  Age: 58 Year

DRUGS (2)
  1. KERENDIA [Suspect]
     Active Substance: FINERENONE
     Dosage: 10 MG, QD
     Route: 048
     Dates: start: 20200512, end: 2024
  2. KERENDIA [Suspect]
     Active Substance: FINERENONE
     Dosage: 10 MG, QD
     Route: 048
     Dates: start: 2024, end: 20240724

REACTIONS (1)
  - Death [Fatal]

NARRATIVE: CASE EVENT DATE: 20250922
